FAERS Safety Report 19165387 (Version 1)
Quarter: 2021Q2

REPORT INFORMATION
  Report Type: Spontaneous
  Country: IT (occurrence: IT)
  Receive Date: 20210421
  Receipt Date: 20210421
  Transmission Date: 20210717
  Serious: Yes (Other)
  Sender: FDA-Public Use
  Company Number: IT-BRISTOL-MYERS SQUIBB COMPANY-BMS-2021-030740

PATIENT
  Age: 70 Year
  Sex: Male

DRUGS (1)
  1. WARFARIN SODIUM. [Suspect]
     Active Substance: WARFARIN SODIUM
     Indication: MYOCARDIAL INFARCTION
     Dosage: UNK
     Route: 065
     Dates: start: 2015

REACTIONS (6)
  - Interstitial granulomatous dermatitis [Recovered/Resolved]
  - Skin lesion [Recovered/Resolved]
  - Rash papular [Recovered/Resolved]
  - Lymphocytic infiltration [Recovered/Resolved]
  - Rash pruritic [Recovered/Resolved]
  - Biopsy skin abnormal [Recovered/Resolved]

NARRATIVE: CASE EVENT DATE: 2015
